FAERS Safety Report 19489899 (Version 1)
Quarter: 2021Q3

REPORT INFORMATION
  Report Type: Spontaneous
  Country: US (occurrence: US)
  Receive Date: 20210704
  Receipt Date: 20210704
  Transmission Date: 20211014
  Serious: No
  Sender: FDA-Public Use
  Company Number: US-ELI_LILLY_AND_COMPANY-US202107001239

PATIENT
  Sex: Female

DRUGS (1)
  1. BASAGLAR [Suspect]
     Active Substance: INSULIN GLARGINE
     Indication: TYPE 2 DIABETES MELLITUS
     Dosage: UNK UNK, UNKNOWN
     Route: 065
     Dates: start: 2018

REACTIONS (6)
  - Joint swelling [Unknown]
  - Joint stiffness [Unknown]
  - Arthritis [Unknown]
  - Muscle spasms [Unknown]
  - Blood uric acid increased [Unknown]
  - Glycosylated haemoglobin increased [Recovering/Resolving]
